FAERS Safety Report 7525641-4 (Version None)
Quarter: 2011Q2

REPORT INFORMATION
  Report Type: 
  Country: None (occurrence: None)
  Receive Date: 20110606
  Receipt Date: 20110524
  Transmission Date: 20111010
  Serious: Yes (Other)
  Sender: FDA-Public Use
  Company Number: PHHY2011CA36310

PATIENT
  Age: 52 Year
  Sex: Female

DRUGS (1)
  1. INTERFERON BETA-1B [Suspect]
     Indication: MULTIPLE SCLEROSIS
     Dosage: 250 UG, QOD
     Route: 058

REACTIONS (9)
  - LIVEDO RETICULARIS [None]
  - INJECTION SITE FIBROSIS [None]
  - INJECTION SITE ERYTHEMA [None]
  - INJECTION SITE CALCIFICATION [None]
  - INJECTION SITE INFLAMMATION [None]
  - SKIN PLAQUE [None]
  - INJECTION SITE PAIN [None]
  - INJECTION SITE ATROPHY [None]
  - INJECTION SITE INDURATION [None]
